FAERS Safety Report 9780931 (Version 1)
Quarter: 2013Q4

REPORT INFORMATION
  Report Type: Spontaneous
  Country: MX (occurrence: MX)
  Receive Date: 20131224
  Receipt Date: 20131224
  Transmission Date: 20140711
  Serious: Yes (Hospitalization)
  Sender: FDA-Public Use
  Company Number: MX-AMGEN-MEXSP2013089710

PATIENT
  Age: 48 Year
  Sex: Female

DRUGS (6)
  1. NEUPOGEN [Suspect]
     Indication: PRODUCT USED FOR UNKNOWN INDICATION
     Dosage: CYCLE 2-4 DOSES ADMINISTERED DAY 8-11, 200 MUG
     Route: 065
  2. NEUPOGEN [Suspect]
     Dosage: CYCLE 3-6 DOSES ADMINISTERED DAY 9-14, 200 MUG
     Route: 065
  3. CYTARABINE [Suspect]
     Indication: PRODUCT USED FOR UNKNOWN INDICATION
     Dosage: DAY 1-3 EVERY 4 WEEKS, 4500 MG
     Route: 065
  4. CYTARABINE [Suspect]
     Dosage: DAY 1-3 EVERY 4 WEEKS, 4500 MG
     Route: 065
  5. ETOPOSIDE [Suspect]
     Indication: PRODUCT USED FOR UNKNOWN INDICATION
     Dosage: DAY 1-3 EVERY 4 WEEKS, 450 MG
     Route: 065
  6. ETOPOSIDE [Suspect]
     Dosage: DAY 1-3 EVERY 4 WEEKS, 450 MG
     Route: 065

REACTIONS (2)
  - Febrile neutropenia [Unknown]
  - Neutropenia [Unknown]
